FAERS Safety Report 19733752 (Version 1)
Quarter: 2021Q3

REPORT INFORMATION
  Report Type: Spontaneous
  Country: US (occurrence: US)
  Receive Date: 20210824
  Receipt Date: 20210824
  Transmission Date: 20211014
  Serious: Yes (Other)
  Sender: FDA-Public Use
  Company Number: US-LUNDBECK-DKLU3036946

PATIENT
  Age: 80 Year
  Sex: Male

DRUGS (2)
  1. NORTHERA [Suspect]
     Active Substance: DROXIDOPA
     Indication: ORTHOSTATIC HYPOTENSION
  2. NORTHERA [Suspect]
     Active Substance: DROXIDOPA
     Indication: PARKINSON^S DISEASE
     Dosage: TITRATION COMPLETE
     Route: 065
     Dates: start: 20191029

REACTIONS (6)
  - Cervical vertebral fracture [Unknown]
  - Product dose omission issue [Unknown]
  - Pelvic fracture [Unknown]
  - Fall [Unknown]
  - Loss of consciousness [Unknown]
  - Dizziness [Unknown]
